FAERS Safety Report 9776061 (Version 2)
Quarter: 2013Q4

REPORT INFORMATION
  Report Type: Spontaneous
  Country: BR (occurrence: BR)
  Receive Date: 20131220
  Receipt Date: 20131224
  Transmission Date: 20140711
  Serious: Yes (Other)
  Sender: FDA-Public Use
  Company Number: PHHY2013BR148820

PATIENT
  Age: 78 Year
  Sex: Female
  Weight: 84 kg

DRUGS (5)
  1. CLOPIDOGREL [Suspect]
     Indication: ANEURYSM
     Dosage: 1 DF, QD
     Route: 048
     Dates: start: 20131122
  2. ACETYLSALICYLIC ACID [Interacting]
  3. SIMVASTATINA [Concomitant]
     Dates: start: 2012
  4. ENALAPRIL [Concomitant]
  5. PURAN T4 [Concomitant]

REACTIONS (2)
  - Faeces discoloured [Recovering/Resolving]
  - Drug interaction [Unknown]
